FAERS Safety Report 11031529 (Version 1)
Quarter: 2015Q2

REPORT INFORMATION
  Report Type: Spontaneous
  Country: US (occurrence: US)
  Receive Date: 20150415
  Receipt Date: 20150415
  Transmission Date: 20150821
  Serious: No
  Sender: FDA-Public Use
  Company Number: US-TARO-2014P1001856

PATIENT
  Age: 62 Year
  Sex: Female
  Weight: 68.04 kg

DRUGS (1)
  1. CICLOPIROX SHAMPOO 1% [Suspect]
     Active Substance: CICLOPIROX
     Indication: FUNGAL INFECTION
     Dosage: X1
     Route: 061
     Dates: start: 20140222, end: 20140222

REACTIONS (2)
  - Accidental exposure to product [Unknown]
  - Application site discolouration [Not Recovered/Not Resolved]

NARRATIVE: CASE EVENT DATE: 20140222
